FAERS Safety Report 8528753-1 (Version None)
Quarter: 2012Q3

REPORT INFORMATION
  Report Type: 
  Country: None (occurrence: None)
  Receive Date: 20120723
  Receipt Date: 20120710
  Transmission Date: 20120928
  Serious: Yes (Disabling, Other)
  Sender: FDA-Public Use
  Company Number: US-009507513-1207USA002463

PATIENT

DRUGS (1)
  1. ZOCOR [Suspect]
     Dosage: 80 MG, UNK

REACTIONS (7)
  - CONFUSIONAL STATE [None]
  - MUSCLE SPASMS [None]
  - TREMOR [None]
  - AMNESIA [None]
  - MUSCLE ATROPHY [None]
  - GAIT DISTURBANCE [None]
  - MYOPATHY [None]
